FAERS Safety Report 17995052 (Version 1)
Quarter: 2020Q3

REPORT INFORMATION
  Report Type: Report from Study
  Country: DE (occurrence: DE)
  Receive Date: 20200708
  Receipt Date: 20200708
  Transmission Date: 20201103
  Serious: Yes (Other)
  Sender: FDA-Public Use
  Company Number: DE-GILEAD-2020-0457295

PATIENT
  Age: 38 Year
  Sex: Male
  Weight: 56 kg

DRUGS (3)
  1. SOFOSBUVIR W/VELPATASVIR [Suspect]
     Active Substance: SOFOSBUVIR\VELPATASVIR
     Indication: CHRONIC HEPATITIS C
     Dosage: 1 DOSAGE FORM, QD
     Route: 048
     Dates: start: 20200303, end: 20200525
  2. DIAZEPAM. [Concomitant]
     Active Substance: DIAZEPAM
  3. LEVOMETHADONE [Concomitant]
     Active Substance: LEVOMETHADONE

REACTIONS (3)
  - Diarrhoea [Recovered/Resolved]
  - Diarrhoea [Recovered/Resolved]
  - Rheumatoid factor positive [Not Recovered/Not Resolved]

NARRATIVE: CASE EVENT DATE: 20200311
